FAERS Safety Report 4763658-3 (Version None)
Quarter: 2005Q3

REPORT INFORMATION
  Report Type: 
  Country: None (occurrence: None)
  Receive Date: 20050908
  Receipt Date: 20050831
  Transmission Date: 20060218
  Serious: Yes (Hospitalization)
  Sender: FDA-Public Use
  Company Number: PHHO2005JP13770

PATIENT
  Age: 75 Year
  Sex: Female

DRUGS (3)
  1. DIOVAN [Suspect]
     Indication: HYPERTENSION
     Dosage: 80 MG, QD
     Route: 048
     Dates: start: 20030503
  2. PROBUCOL [Suspect]
     Dosage: 250 MG, QD
     Route: 048
     Dates: start: 20000401
  3. FLUTRIA [Suspect]
     Dosage: 1 MG, QD
     Route: 048
     Dates: start: 20040904

REACTIONS (1)
  - PANCYTOPENIA [None]
